FAERS Safety Report 15917223 (Version 1)
Quarter: 2019Q1

REPORT INFORMATION
  Report Type: Spontaneous
  Country: SE (occurrence: SE)
  Receive Date: 20190205
  Receipt Date: 20190205
  Transmission Date: 20190417
  Serious: Yes (Hospitalization)
  Sender: FDA-Public Use
  Company Number: SE-JNJFOC-20190136744

PATIENT
  Sex: Female
  Weight: 55 kg

DRUGS (5)
  1. BURANA [Suspect]
     Active Substance: IBUPROFEN
     Indication: PRODUCT USED FOR UNKNOWN INDICATION
     Dosage: 6 CAPSULES
     Route: 048
     Dates: start: 20180324, end: 20180324
  2. IPREN 400 MG FILMDRAGERAD TABLETT [Suspect]
     Active Substance: IBUPROFEN
     Indication: PRODUCT USED FOR UNKNOWN INDICATION
     Dosage: 10 TABLETS
     Route: 048
     Dates: start: 20180324, end: 20180324
  3. ALVEDON [Suspect]
     Active Substance: ACETAMINOPHEN
     Indication: PRODUCT USED FOR UNKNOWN INDICATION
     Dosage: A PACKAGE OF ALVEDON WITH UNKNOWN INTENSITY?, NOT A SUSTAINED-RELEASE TABLET.
     Route: 048
     Dates: start: 20180324, end: 20180324
  4. IPREN 400 MG FILMDRAGERAD TABLETT [Suspect]
     Active Substance: IBUPROFEN
     Route: 048
  5. COCILLANA-ETYFIN [Suspect]
     Active Substance: ETHYLMORPHINE HYDROCHLORIDE\HERBALS
     Indication: PRODUCT USED FOR UNKNOWN INDICATION
     Route: 048
     Dates: start: 20180324, end: 20180324

REACTIONS (4)
  - Intentional overdose [Unknown]
  - Somnolence [Unknown]
  - Intentional self-injury [Unknown]
  - Vomiting [Unknown]

NARRATIVE: CASE EVENT DATE: 201803
